FAERS Safety Report 5712355-6 (Version None)
Quarter: 2008Q2

REPORT INFORMATION
  Report Type: 
  Country: None (occurrence: None)
  Receive Date: 20080421
  Receipt Date: 20080421
  Transmission Date: 20081010
  Serious: Yes (Other)
  Sender: FDA-Public Use
  Company Number: None

PATIENT
  Age: 72 Year
  Sex: Male
  Weight: 83.9154 kg

DRUGS (1)
  1. BACLOFEN [Suspect]
     Indication: NECK PAIN
     Dosage: 5 MG TID PO
     Route: 048
     Dates: start: 20080215, end: 20080218

REACTIONS (10)
  - ASTHENIA [None]
  - BACK PAIN [None]
  - CONFUSIONAL STATE [None]
  - DRUG DISPENSING ERROR [None]
  - HALLUCINATION [None]
  - HIP ARTHROPLASTY [None]
  - MUSCULAR WEAKNESS [None]
  - OVERDOSE [None]
  - SOMNOLENCE [None]
  - VOMITING [None]
